FAERS Safety Report 7404528-1 (Version None)
Quarter: 2011Q2

REPORT INFORMATION
  Report Type: 
  Country: None (occurrence: None)
  Receive Date: 20110410
  Receipt Date: 20110328
  Transmission Date: 20111010
  Serious: Yes (Hospitalization)
  Sender: FDA-Public Use
  Company Number: FR-BRISTOL-MYERS SQUIBB COMPANY-15321284

PATIENT
  Age: 67 Year
  Sex: Male

DRUGS (14)
  1. PREDNISONE [Suspect]
     Indication: PROSTATE CANCER
     Route: 048
     Dates: start: 20100811, end: 20101013
  2. BLINDED: PLACEBO [Suspect]
     Indication: PROSTATE CANCER
     Dosage: INTERRUPTED 01OCT10
     Route: 048
     Dates: start: 20100811, end: 20101001
  3. LEUPRORELIN [Concomitant]
     Dates: start: 20100519
  4. ALUMINUM HYDROXIDE AND MAGNESIUM TRISILICATE [Concomitant]
     Dates: start: 20100929
  5. ACETAMINOPHEN [Concomitant]
     Dates: start: 20090901
  6. PHLOROGLUCINOL [Concomitant]
     Dates: start: 20101015
  7. RAMIPRIL [Concomitant]
     Dates: start: 20101015
  8. FUROSEMIDE [Concomitant]
     Dates: start: 20101015
  9. SODIUM CHLORIDE [Concomitant]
     Dates: start: 20101006, end: 20101007
  10. DASATINIB [Suspect]
     Indication: PROSTATE CANCER
     Dosage: INTERRUPTED ON 01OCT10
     Route: 048
     Dates: start: 20100811, end: 20101001
  11. TAXOTERE [Suspect]
     Indication: PROSTATE CANCER
     Dosage: ALSO TAKEN ON 20OCT2010
     Route: 042
     Dates: start: 20100811, end: 20100923
  12. PHLOROGLUCINOL [Concomitant]
     Dates: start: 20100929
  13. PHLOROGLUCINOL [Concomitant]
     Dates: start: 20100929
  14. ZOLEDRONIC ACID [Concomitant]
     Dates: start: 20090901

REACTIONS (5)
  - CONSTIPATION [None]
  - CONFUSIONAL STATE [None]
  - NEPHROTIC SYNDROME [None]
  - RENAL FAILURE [None]
  - PROCTITIS [None]
